FAERS Safety Report 4655374-3 (Version None)
Quarter: 2005Q2

REPORT INFORMATION
  Report Type: 
  Country: None (occurrence: None)
  Receive Date: 20050505
  Receipt Date: 20050415
  Transmission Date: 20051028
  Serious: Yes (Other)
  Sender: FDA-Public Use
  Company Number: US_0504115948

PATIENT

DRUGS (1)
  1. ZYPREXA [Suspect]

REACTIONS (4)
  - ACCIDENTAL EXPOSURE [None]
  - HEAD INJURY [None]
  - LOSS OF CONSCIOUSNESS [None]
  - MEDICATION ERROR [None]
